FAERS Safety Report 21562810 (Version 1)
Quarter: 2022Q4

REPORT INFORMATION
  Report Type: Spontaneous
  Country: US (occurrence: None)
  Receive Date: 20221104
  Receipt Date: 20221104
  Transmission Date: 20230112
  Serious: Yes (Hospitalization)
  Sender: FDA-Public Use
  Company Number: None

PATIENT
  Sex: Male

DRUGS (1)
  1. NUBEQA [Suspect]
     Active Substance: DAROLUTAMIDE
     Indication: Prostate cancer
     Dosage: 600 MG TWICE A DAY ORAL?
     Route: 048
     Dates: start: 20221004, end: 20221021

REACTIONS (5)
  - Nausea [None]
  - Weight decreased [None]
  - Therapy interrupted [None]
  - Nonspecific reaction [None]
  - Pain [None]
